FAERS Safety Report 5518152-9 (Version None)
Quarter: 2007Q4

REPORT INFORMATION
  Report Type: 
  Country: None (occurrence: None)
  Receive Date: 20071113
  Receipt Date: 20071102
  Transmission Date: 20080405
  Serious: Yes (Hospitalization)
  Sender: FDA-Public Use
  Company Number: 163842USA

PATIENT
  Age: 30 Year
  Sex: Male

DRUGS (4)
  1. PIMOZIDE                   (PIMOZIDE) [Suspect]
     Indication: DEPRESSION
     Dosage: 4 MG (4 MG, 1 IN 1 D), ORAL
     Route: 048
     Dates: start: 20050101
  2. PIMOZIDE                   (PIMOZIDE) [Suspect]
     Indication: NERVOUS SYSTEM DISORDER
     Dosage: 4 MG (4 MG, 1 IN 1 D), ORAL
     Route: 048
     Dates: start: 20050101
  3. CLONAZEPAM [Concomitant]
  4. LITHIUM CARBONATE [Concomitant]

REACTIONS (3)
  - ERECTILE DYSFUNCTION [None]
  - UNEVALUABLE EVENT [None]
  - WEIGHT INCREASED [None]
